FAERS Safety Report 8835347 (Version 2)
Quarter: 2012Q4

REPORT INFORMATION
  Report Type: 
  Country: JP (occurrence: JP)
  Receive Date: 20121011
  Receipt Date: 20121102
  Transmission Date: 20130627
  Serious: Yes (Hospitalization)
  Sender: FDA-Public Use
  Company Number: JP-BAYER-2012-054123

PATIENT
  Age: 84 Year
  Sex: Male
  Weight: 61 kg

DRUGS (6)
  1. NEXAVAR [Suspect]
     Indication: RENAL CANCER
     Dosage: Daily dose 400 mg
     Route: 048
     Dates: start: 20120523, end: 20121003
  2. NEXAVAR [Suspect]
     Indication: METASTASES TO LUNG
  3. THYRADIN S [Concomitant]
     Indication: THYROID FUNCTION DECREASED
     Dosage: Daily dose 50 ?g
     Route: 048
     Dates: start: 20120605
  4. AMLODIPINE [Concomitant]
     Indication: HYPERTENSION
     Dosage: Daily dose 25 mg
     Route: 048
  5. ALLOZYM [Concomitant]
     Indication: HYPERURICAEMIA
     Dosage: Daily dose 100 mg
     Route: 048
  6. SUMIFERON [Concomitant]
     Dosage: UNK
     Route: 030
     Dates: start: 20111102, end: 20120511

REACTIONS (3)
  - Amylase increased [Not Recovered/Not Resolved]
  - Blood thyroid stimulating hormone increased [Not Recovered/Not Resolved]
  - Aortic dissection [Unknown]
